FAERS Safety Report 6871964-1 (Version None)
Quarter: 2010Q3

REPORT INFORMATION
  Report Type: 
  Country: None (occurrence: None)
  Receive Date: 20100723
  Receipt Date: 20100719
  Transmission Date: 20110219
  Serious: Yes (Hospitalization)
  Sender: FDA-Public Use
  Company Number: GB-AMGEN-KDC423985

PATIENT
  Sex: Male

DRUGS (24)
  1. VECTIBIX [Suspect]
     Indication: GASTROOESOPHAGEAL CANCER
     Route: 042
     Dates: start: 20100129
  2. EPIRUBICIN [Suspect]
     Dates: start: 20100129
  3. OXALIPLATIN [Suspect]
     Dates: start: 20100129
  4. CAPECITABINE [Suspect]
     Dates: start: 20100129
  5. HYDROCORTISONE [Concomitant]
     Dates: start: 20100610
  6. LOPERAMIDE [Concomitant]
     Dates: start: 20100614
  7. MAGNESIUM [Concomitant]
     Dates: start: 20100614
  8. ACETAMINOPHEN AND CODEINE PHOSPHATE [Concomitant]
     Dates: start: 20100625
  9. FLUCLOXACILLIN [Concomitant]
     Dates: start: 20100429, end: 20100713
  10. PYRIDOXINE HCL [Concomitant]
     Dates: start: 20100421
  11. CLEXANE [Concomitant]
     Dates: start: 20100324
  12. FUROSEMIDE [Concomitant]
     Dates: start: 20100709
  13. NORMAL SALINE [Concomitant]
     Dates: start: 20100630
  14. LISINOPRIL [Concomitant]
     Dates: start: 20050101
  15. PIOGLITAZONE [Concomitant]
     Dates: start: 20050101
  16. DOMPERIDONE [Concomitant]
     Dates: start: 20091201
  17. METOCLOPRAMIDE [Concomitant]
     Dates: start: 20100129
  18. DEXAMETHASONE [Concomitant]
     Dates: start: 20100129
  19. ONDANSETRON [Concomitant]
     Dates: start: 20100129
  20. NULYTELY [Concomitant]
     Dates: start: 20100218
  21. CLINDAMYCIN [Concomitant]
     Dates: start: 20100218
  22. BETAMETHASONE [Concomitant]
     Dates: start: 20100218
  23. TETRACYCLINE [Concomitant]
     Dates: start: 20100211
  24. LANSOPRAZOLE [Concomitant]
     Dates: start: 20100211

REACTIONS (1)
  - URINARY TRACT INFECTION [None]
